FAERS Safety Report 5958683-0 (Version None)
Quarter: 2008Q4

REPORT INFORMATION
  Report Type: 
  Country: None (occurrence: None)
  Receive Date: 20081119
  Receipt Date: 20081112
  Transmission Date: 20090506
  Serious: Yes (Other)
  Sender: FDA-Public Use
  Company Number: US-PFIZER INC-2008095429

PATIENT
  Sex: Male

DRUGS (1)
  1. MEDROL [Suspect]
     Indication: BRONCHITIS
     Dosage: TEXT:4MG
     Dates: start: 20081031, end: 20081104

REACTIONS (3)
  - ANXIETY [None]
  - DEPRESSION [None]
  - TREMOR [None]
